FAERS Safety Report 6057396-7 (Version None)
Quarter: 2009Q1

REPORT INFORMATION
  Report Type: 
  Country: None (occurrence: None)
  Receive Date: 20090126
  Receipt Date: 20090126
  Transmission Date: 20090719
  Serious: Yes (Other)
  Sender: FDA-Public Use
  Company Number: None

PATIENT
  Age: 34 Year
  Sex: Female
  Weight: 90.7194 kg

DRUGS (2)
  1. NITROFURANTOIN [Suspect]
     Indication: BACTERIAL INFECTION
     Dosage: 100MG 1 TIME PER DAY PO
     Route: 048
     Dates: start: 20090112, end: 20090119
  2. NITROFURANTOIN [Suspect]
     Indication: BLADDER CYST
     Dosage: 100MG 1 TIME PER DAY PO
     Route: 048
     Dates: start: 20090112, end: 20090119

REACTIONS (1)
  - DRUG HYPERSENSITIVITY [None]
